FAERS Safety Report 7028721-5 (Version None)
Quarter: 2010Q4

REPORT INFORMATION
  Report Type: 
  Country: None (occurrence: None)
  Receive Date: 20101004
  Receipt Date: 20101004
  Transmission Date: 20110411
  Serious: Yes (Hospitalization, Other)
  Sender: FDA-Public Use
  Company Number: None

PATIENT
  Sex: Female
  Weight: 47.1741 kg

DRUGS (1)
  1. RECLAST [Suspect]
     Indication: OSTEOPOROSIS
     Route: 042
     Dates: start: 20100527, end: 20100527

REACTIONS (15)
  - ATRIAL FIBRILLATION [None]
  - BONE DISORDER [None]
  - ELECTROLYTE IMBALANCE [None]
  - EXOSTOSIS [None]
  - EYE DISORDER [None]
  - EYE SWELLING [None]
  - HIATUS HERNIA [None]
  - IMPAIRED GASTRIC EMPTYING [None]
  - INFUSION RELATED REACTION [None]
  - LUNG DISORDER [None]
  - NAUSEA [None]
  - RED BLOOD CELL COUNT DECREASED [None]
  - TUNNEL VISION [None]
  - VOMITING [None]
  - WHITE BLOOD CELL COUNT DECREASED [None]
